FAERS Safety Report 8370239-1 (Version None)
Quarter: 2012Q2

REPORT INFORMATION
  Report Type: 
  Country: None (occurrence: None)
  Receive Date: 20120518
  Receipt Date: 20120507
  Transmission Date: 20120825
  Serious: No
  Sender: FDA-Public Use
  Company Number: US-ASTRAZENECA-2011SE41454

PATIENT
  Age: 62 Year
  Sex: Female
  Weight: 83.9 kg

DRUGS (41)
  1. NEXIUM [Suspect]
     Dosage: 1/DAY, TOOK 2/DAY FROM FEBRUARY 2006 TO DECEMBER 2006
     Route: 048
     Dates: start: 20010401
  2. PCE [Suspect]
  3. UROMAR [Suspect]
     Indication: BLADDER SPASM
  4. PRILOSEC [Concomitant]
     Indication: CHEST PAIN
  5. PREMARIN [Concomitant]
     Indication: HORMONE THERAPY
  6. PAXIL [Concomitant]
  7. NEXIUM [Suspect]
     Dosage: 1/DAY, TOOK 2/DAY FROM FEBRUARY 2006 TO DECEMBER 2006
     Route: 048
     Dates: start: 20010401
  8. PRILOSEC [Concomitant]
     Indication: GASTROOESOPHAGEAL REFLUX DISEASE
  9. PRILOSEC [Concomitant]
     Dosage: 20 MG THREE TIMES A DAY
     Dates: start: 20010324
  10. NITROGLYCERIN [Concomitant]
     Indication: OESOPHAGEAL SPASM
  11. NEXIUM [Suspect]
     Route: 048
     Dates: start: 20011218
  12. CEFZIL [Suspect]
  13. PRILOSEC [Concomitant]
     Dates: start: 20010724
  14. NEXIUM [Suspect]
     Indication: GASTROOESOPHAGEAL REFLUX DISEASE
     Route: 048
     Dates: start: 20010101
  15. NEXIUM [Suspect]
     Indication: CHEST PAIN
     Route: 048
     Dates: start: 20010101
  16. NEXIUM [Suspect]
     Route: 048
  17. PRILOSEC [Concomitant]
     Dates: start: 20010724
  18. PLAVIX [Concomitant]
     Indication: CARDIAC DISORDER
     Dates: start: 20050101
  19. NORVASC [Concomitant]
     Indication: BLOOD PRESSURE
  20. DIOVAN [Concomitant]
     Indication: BLOOD PRESSURE
  21. FOSAMOX [Concomitant]
     Indication: OSTEOPOROSIS
  22. PHENERGAN [Suspect]
  23. PRILOSEC [Concomitant]
     Dosage: 20 MG THREE TIMES A DAY
     Dates: start: 20010324
  24. LEVOTHYROXINE SODIUM [Concomitant]
     Indication: HYPOTHYROIDISM
     Dosage: 80 TO 88 MCG
  25. EFFEXOR XR [Concomitant]
     Dates: end: 20050101
  26. HYDROCHLOROTHIZIDE [Concomitant]
     Indication: CARDIAC DISORDER
  27. ZOCOR [Concomitant]
     Indication: BLOOD CHOLESTEROL
  28. PLAVIX [Concomitant]
     Indication: PERIPHERAL VASCULAR DISORDER
     Dates: start: 20050101
  29. CELEXA [Concomitant]
     Indication: DEPRESSION
  30. CENESTIN [Concomitant]
     Indication: HORMONE THERAPY
  31. PAXIL [Concomitant]
     Indication: DEPRESSION
     Dates: start: 20011218
  32. EFFEXOR XR [Concomitant]
     Indication: DEPRESSION
     Dates: start: 20011219
  33. NEXIUM [Suspect]
     Route: 048
  34. BENTYL [Suspect]
  35. METAMUCIL-2 [Suspect]
  36. ATENOLOL [Concomitant]
     Indication: CARDIAC DISORDER
  37. AVAPRO [Concomitant]
     Indication: CARDIAC DISORDER
     Dosage: 30 MG
  38. CELEXA [Concomitant]
     Indication: ANXIETY
  39. ASPIRIN [Concomitant]
     Indication: ANTICOAGULANT THERAPY
  40. NEXIUM [Suspect]
     Route: 048
     Dates: start: 20011218
  41. CITALOPRAM HYDROBROMIDE [Concomitant]
     Indication: DEPRESSION
     Dates: start: 20050101

REACTIONS (15)
  - CHEST PAIN [None]
  - LIMB DISCOMFORT [None]
  - BONE DENSITY DECREASED [None]
  - ABDOMINAL PAIN LOWER [None]
  - ABDOMINAL PAIN [None]
  - FALL [None]
  - DEPRESSION [None]
  - OSTEOPENIA [None]
  - HYPOTHYROIDISM [None]
  - MUSCULOSKELETAL DISCOMFORT [None]
  - ARTHROPATHY [None]
  - INFLUENZA [None]
  - OSTEOPOROSIS [None]
  - PERIPHERAL VASCULAR DISORDER [None]
  - NECK PAIN [None]
